FAERS Safety Report 8952993 (Version 2)
Quarter: 2013Q1

REPORT INFORMATION
  Report Type: Spontaneous
  Country: US (occurrence: US)
  Receive Date: 20121205
  Receipt Date: 20130307
  Transmission Date: 20140127
  Serious: Yes (Disabling, Other)
  Sender: FDA-Public Use
  Company Number: US-009507513-1212USA001680

PATIENT
  Sex: Female

DRUGS (1)
  1. FOSAMAX [Suspect]
     Indication: OSTEOPOROSIS
     Dosage: 70 MG, QW
     Route: 048
     Dates: start: 2000, end: 20100622

REACTIONS (6)
  - Femur fracture [Unknown]
  - Fall [Unknown]
  - Surgery [Unknown]
  - Fracture nonunion [Unknown]
  - Osteopetrosis [Unknown]
  - Rheumatoid arthritis [Unknown]
